FAERS Safety Report 11043088 (Version 1)
Quarter: 2015Q2

REPORT INFORMATION
  Report Type: Spontaneous
  Country: US (occurrence: None)
  Receive Date: 20150416
  Receipt Date: 20150416
  Transmission Date: 20150821
  Serious: Yes (Hospitalization)
  Sender: FDA-Public Use
  Company Number: None

PATIENT
  Age: 69 Year
  Sex: Male
  Weight: 80 kg

DRUGS (1)
  1. IBUPROFEN. [Suspect]
     Active Substance: IBUPROFEN
     Indication: PAIN
     Route: 048
     Dates: start: 20131101, end: 20150106

REACTIONS (8)
  - Rectal haemorrhage [None]
  - Thrombosis [None]
  - Melaena [None]
  - Gastrointestinal disorder [None]
  - Diverticulitis intestinal haemorrhagic [None]
  - Anaemia [None]
  - Haemoglobin decreased [None]
  - Gastric haemorrhage [None]

NARRATIVE: CASE EVENT DATE: 20150106
